FAERS Safety Report 8933766 (Version 1)
Quarter: 2012Q4

REPORT INFORMATION
  Report Type: 
  Country: FR (occurrence: FR)
  Receive Date: 20121129
  Receipt Date: 20121129
  Transmission Date: 20130627
  Serious: Yes (Hospitalization)
  Sender: FDA-Public Use
  Company Number: FR-SANOFI-AVENTIS-2012SA084709

PATIENT
  Age: 72 Year
  Sex: Male

DRUGS (3)
  1. LASILIX [Suspect]
     Indication: DRUG USE FOR UNKNOWN INDICATION
     Route: 065
     Dates: start: 20120717, end: 20120801
  2. IMOVANE [Suspect]
     Indication: DRUG USE FOR UNKNOWN INDICATION
     Route: 065
     Dates: start: 20120712, end: 20120801
  3. RISPERDAL [Suspect]
     Indication: CONFUSION
     Route: 065
     Dates: start: 20120723, end: 20120801

REACTIONS (1)
  - Hepatocellular injury [Recovered/Resolved]
